FAERS Safety Report 8049554-7 (Version None)
Quarter: 2011Q4

REPORT INFORMATION
  Report Type: 
  Country: None (occurrence: None)
  Receive Date: 20111209
  Receipt Date: 20110922
  Transmission Date: 20120403
  Serious: No
  Sender: FDA-Public Use
  Company Number: TH-2011-00399

PATIENT
  Age: 56 Year
  Sex: Male

DRUGS (4)
  1. NEURONTIN [Concomitant]
  2. EPIVIR [Concomitant]
  3. EGRIFTA [Suspect]
     Indication: LIPODYSTROPHY ACQUIRED
     Dosage: 1 IN 1 D
     Dates: start: 20110501, end: 20110901
  4. LEXAPRO [Concomitant]

REACTIONS (3)
  - SKIN BURNING SENSATION [None]
  - ARTHRALGIA [None]
  - MUSCULAR WEAKNESS [None]
